FAERS Safety Report 19742331 (Version 1)
Quarter: 2021Q3

REPORT INFORMATION
  Report Type: Spontaneous
  Country: US (occurrence: US)
  Receive Date: 20210825
  Receipt Date: 20210825
  Transmission Date: 20211014
  Serious: Yes (Life-Threatening, Hospitalization, Other)
  Sender: FDA-Public Use
  Company Number: US-LUPIN PHARMACEUTICALS INC.-2021-15608

PATIENT
  Sex: Male

DRUGS (7)
  1. TINIDAZOLE. [Suspect]
     Active Substance: TINIDAZOLE
     Dosage: UNK TOOK HIGHER THAN PRESCRIBED DOSES (OVERDOSE)
     Route: 065
  2. MINOCYCLINE [Suspect]
     Active Substance: MINOCYCLINE HYDROCHLORIDE
     Dosage: UNKTOOK HIGHER THAN PRESCRIBED DOSES (OVERDOSE)
     Route: 065
  3. DISULFIRAM. [Suspect]
     Active Substance: DISULFIRAM
     Indication: LYME DISEASE
     Dosage: 375 MILLIGRAM, QD
     Route: 065
  4. TINIDAZOLE. [Suspect]
     Active Substance: TINIDAZOLE
     Indication: LYME DISEASE
     Dosage: 500 MILLIGRAM, BID
     Route: 065
  5. TRIHEXYPHENIDYL [Concomitant]
     Active Substance: TRIHEXYPHENIDYL
     Indication: NERVOUS SYSTEM DISORDER
     Dosage: UNK
     Route: 065
  6. DISULFIRAM. [Suspect]
     Active Substance: DISULFIRAM
     Dosage: UNK TOOK HIGHER THAN PRESCRIBED DOSES (OVERDOSE)
     Route: 065
  7. MINOCYCLINE [Suspect]
     Active Substance: MINOCYCLINE HYDROCHLORIDE
     Indication: LYME DISEASE
     Dosage: 100 MILLIGRAM, BID
     Route: 065

REACTIONS (7)
  - Nervous system disorder [Unknown]
  - Peripheral motor neuropathy [Unknown]
  - Peripheral sensory neuropathy [Unknown]
  - Toxicity to various agents [Unknown]
  - Respiratory failure [Unknown]
  - Depressed level of consciousness [Unknown]
  - Overdose [Unknown]
